APPROVED DRUG PRODUCT: PREGABALIN
Active Ingredient: PREGABALIN
Strength: 75MG
Dosage Form/Route: CAPSULE;ORAL
Application: A212988 | Product #003 | TE Code: AB
Applicant: ESKAYEF PHARMACEUTICALS LTD
Approved: Mar 8, 2022 | RLD: No | RS: No | Type: RX